FAERS Safety Report 24367808 (Version 1)
Quarter: 2024Q3

REPORT INFORMATION
  Report Type: Spontaneous
  Country: US (occurrence: US)
  Receive Date: 20240926
  Receipt Date: 20240926
  Transmission Date: 20241016
  Serious: Yes (Other)
  Sender: DR REDDYS
  Company Number: US-DRL-USA-SPO/USA/24/0013989

PATIENT
  Age: 49 Year
  Sex: Female

DRUGS (17)
  1. CYCLOSPORINE [Suspect]
     Active Substance: CYCLOSPORINE
     Indication: Chronic spontaneous urticaria
     Dosage: 100 MG TWICE DAILY
  2. CETIRIZINE [Suspect]
     Active Substance: CETIRIZINE HYDROCHLORIDE
     Indication: Chronic spontaneous urticaria
     Dosage: 20 MG TWICE DAILY
  3. FEXOFENADINE [Suspect]
     Active Substance: FEXOFENADINE HYDROCHLORIDE
     Indication: Chronic spontaneous urticaria
     Dosage: 360 MG TWICE DAILY
  4. LEVOCETIRIZINE [Suspect]
     Active Substance: LEVOCETIRIZINE
     Indication: Chronic spontaneous urticaria
     Dosage: 10 MG TWICE DAILY
  5. CIMETIDINE [Concomitant]
     Active Substance: CIMETIDINE
     Indication: Chronic spontaneous urticaria
     Dosage: 400 MG TWICE DAILY
  6. DIPHENHYDRAMINE [Concomitant]
     Active Substance: DIPHENHYDRAMINE
     Indication: Chronic spontaneous urticaria
     Dosage: 25 MG DAILY
  7. HYDROXYZINE [Concomitant]
     Active Substance: HYDROXYZINE HYDROCHLORIDE
     Indication: Chronic spontaneous urticaria
     Dosage: 50 MG NIGHTLY
  8. OMALIZUMAB [Concomitant]
     Active Substance: OMALIZUMAB
     Indication: Chronic spontaneous urticaria
     Dosage: 300 MG EVERY 4 WEEKS WAS GIVEN?FOR ABOUT 6 MONTHS,
  9. OMALIZUMAB [Concomitant]
     Active Substance: OMALIZUMAB
     Dosage: 300 MG EVERY 2 WEEKS FOR AN ADDITIONAL 6 MONTHS
  10. HYDROXYCHLOROQUINE [Concomitant]
     Active Substance: HYDROXYCHLOROQUINE
     Indication: Chronic spontaneous urticaria
     Dosage: 200 MG DAILY
  11. HYDROXYCHLOROQUINE [Concomitant]
     Active Substance: HYDROXYCHLOROQUINE
     Dosage: 300 MG EVERY 2 WEEKS FOR AN ADDITIONAL 6 MONTHS
  12. MYCOPHENOLATE MOFETIL [Concomitant]
     Active Substance: MYCOPHENOLATE MOFETIL
     Indication: Chronic spontaneous urticaria
     Dosage: 500 MG TWICE DAILY
  13. MYCOPHENOLATE MOFETIL [Concomitant]
     Active Substance: MYCOPHENOLATE MOFETIL
     Dosage: 300 MG EVERY 2 WEEKS FOR AN ADDITIONAL 6 MONTHS
  14. SULFASALAZINE [Concomitant]
     Active Substance: SULFASALAZINE
     Indication: Chronic spontaneous urticaria
     Dosage: 1000 MG TWICE DAILY
  15. SULFASALAZINE [Concomitant]
     Active Substance: SULFASALAZINE
     Dosage: 300 MG EVERY 2 WEEKS FOR AN ADDITIONAL 6 MONTHS
  16. DAPSONE [Concomitant]
     Active Substance: DAPSONE
     Indication: Chronic spontaneous urticaria
     Dosage: 100 MG DAILY
  17. DAPSONE [Concomitant]
     Active Substance: DAPSONE
     Dosage: 300 MG EVERY 2 WEEKS FOR AN ADDITIONAL 6 MONTHS

REACTIONS (4)
  - Treatment failure [Unknown]
  - Hirsutism [Unknown]
  - Hypertension [Unknown]
  - Product use in unapproved indication [Unknown]
